FAERS Safety Report 4462868-2 (Version None)
Quarter: 2004Q3

REPORT INFORMATION
  Report Type: 
  Country: None (occurrence: None)
  Receive Date: 20040927
  Receipt Date: 20040913
  Transmission Date: 20050211
  Serious: Yes (Hospitalization, Other)
  Sender: FDA-Public Use
  Company Number: HQWYE994313SEP04

PATIENT
  Age: 72 Year
  Sex: Female

DRUGS (4)
  1. AVLOCARDYL LP (PROPRANOLOL HYDROCHLORIDE) [Suspect]
     Dosage: 160 MG 1X PER 1 DAY ORAL
     Route: 048
  2. CO-RENITEC (ENALAPRIL MALEATE/HYDROCHLOROTHIAZIDE, ) [Suspect]
     Dosage: 1 DOSAGE FORM 1X PER  1 DAY ORAL
     Route: 048
  3. NOROXIN [Suspect]
     Indication: URINARY TRACT INFECTION
     Dosage: 400 MG 2X PER 1 DAY ORAL
     Route: 048
     Dates: start: 20040712, end: 20040717
  4. ZEFFIX (LAMIVUDINE, ) [Suspect]
     Dosage: 100 MG 1X PER 1 DAY ORAL
     Route: 048

REACTIONS (17)
  - ANOREXIA [None]
  - ASTERIXIS [None]
  - COGWHEEL RIGIDITY [None]
  - DEHYDRATION [None]
  - DEPRESSED LEVEL OF CONSCIOUSNESS [None]
  - DISTURBANCE IN ATTENTION [None]
  - FOETOR HEPATICUS [None]
  - GENERAL PHYSICAL HEALTH DETERIORATION [None]
  - HYPERTHERMIA [None]
  - HYPERTONIA [None]
  - IMPAIRED SELF-CARE [None]
  - JAUNDICE [None]
  - NAUSEA [None]
  - NECK PAIN [None]
  - SOMNOLENCE [None]
  - URINARY RETENTION [None]
  - URINARY TRACT INFECTION [None]
